FAERS Safety Report 14841150 (Version 1)
Quarter: 2018Q2

REPORT INFORMATION
  Report Type: Spontaneous
  Country: US (occurrence: US)
  Receive Date: 20180418
  Receipt Date: 20180418
  Transmission Date: 20180711
  Serious: Yes (Other)
  Sender: FDA-Public Use
  Company Number: None

PATIENT
  Age: 53 Year
  Sex: Female
  Weight: 67.8 kg

DRUGS (1)
  1. RITUXAN [Suspect]
     Active Substance: RITUXIMAB
     Indication: SCLERODERMA
     Route: 041
     Dates: start: 20180326, end: 20180326

REACTIONS (4)
  - Abdominal pain [None]
  - Diarrhoea [None]
  - Hypoaesthesia oral [None]
  - Feeling cold [None]

NARRATIVE: CASE EVENT DATE: 20180326
